FAERS Safety Report 9248792 (Version 1)
Quarter: 2013Q1

REPORT INFORMATION
  Report Type: Spontaneous
  Country: US (occurrence: None)
  Receive Date: 20121120
  Receipt Date: 20121120
  Transmission Date: 20140127
  Serious: No
  Sender: FDA-Public Use
  Company Number: 1000038565

PATIENT
  Age: 63 Year
  Sex: Female

DRUGS (14)
  1. VIIBRYD [Suspect]
     Indication: DEPRESSION
     Route: 048
     Dates: start: 20120628, end: 20120704
  2. LYRICA (PREGABALIN)  (PREGABALIN) [Concomitant]
  3. LASIX (FUROSEMIDE) (FUROSEMIDE) [Concomitant]
  4. LISINOPRIL (LISINOPRIL) (LISINOPRIL) [Concomitant]
  5. ALLEGRA (FEXOFENADINE HYDROCHLORIDE) (FEXOFENADINE HYDROCHLORIDE) [Concomitant]
  6. ALLOPURINOL (ALLOPURINOL) (ALLOPURINOL) [Concomitant]
  7. PREVACID (LANSOPRAZOLE) (LANSOPRAZOLE) [Concomitant]
  8. LANTUS (INSULIN GLARGINE) (INSULIN GLARGINE) [Concomitant]
  9. METFORMIN (METFORMIN) (METFORMIN) [Concomitant]
  10. NOVOLOG (INSULIN ASPART) (INJECTION) (INSULIN ASPART) [Concomitant]
  11. OMNARIS (CICLESONIDE) (CICLESONIDE) [Concomitant]
  12. PAMELOR (NORTRIPTYLINE HYDROCHLORIDE) (NORTRIPTYLINE HYDROCHLORIDE) [Concomitant]
  13. POTASSIUM (POTASSIUM) (POTASSIUM) [Concomitant]
  14. ZOCOR (SIMVASTATIN) (SIMVASTATIN) [Concomitant]

REACTIONS (2)
  - Mood swings [None]
  - Medication error [None]
